FAERS Safety Report 10252576 (Version 2)
Quarter: 2014Q2

REPORT INFORMATION
  Report Type: Report from Study
  Country: KR (occurrence: KR)
  Receive Date: 20140623
  Receipt Date: 20140623
  Transmission Date: 20141212
  Serious: Yes (Hospitalization)
  Sender: FDA-Public Use
  Company Number: KR-OTSUKA-US-2014-10256

PATIENT
  Age: 23 Year
  Sex: Male

DRUGS (9)
  1. BLINDED OPC-14597 [Suspect]
     Indication: BIPOLAR I DISORDER
     Dosage: UNK
     Dates: start: 20131227, end: 20140128
  2. BLINDED OPC-14597 [Suspect]
     Dosage: 20 MG MILLIGRAM(S), UNK
     Route: 048
     Dates: start: 20140116
  3. BLINDED OPC-14597 [Suspect]
     Dosage: 25 MG MILLIGRAM(S), UNK
     Dates: start: 20140129, end: 20140202
  4. BENZTROPINE MESYLATE [Concomitant]
     Indication: AKATHISIA
     Dosage: 2 MG MILLIGRAM(S), QD
     Route: 048
     Dates: start: 20131122, end: 20140115
  5. BENZTROPINE MESYLATE [Concomitant]
     Dosage: 4 MG MILLIGRAM(S), QD
     Route: 048
     Dates: start: 20140129
  6. PROPANOLOL HYDROCHLORIDE [Concomitant]
     Indication: AKATHISIA
     Dosage: 40 MG MILLIGRAM(S), QD
     Route: 048
     Dates: start: 20140109, end: 20140128
  7. PROPANOLOL HYDROCHLORIDE [Concomitant]
     Dosage: 40 MG MILLIGRAM(S), QD
     Route: 048
     Dates: start: 20140131
  8. DIAZEPAM [Concomitant]
     Indication: MANIA
     Dosage: 10 MG MILLIGRAM(S), QD
     Route: 048
     Dates: start: 20131122, end: 20140122
  9. DIAZEPAM [Concomitant]
     Dosage: 5 MG MILLIGRAM(S), QD
     Route: 048
     Dates: start: 20140123, end: 20140128

REACTIONS (3)
  - Akathisia [Not Recovered/Not Resolved]
  - Extrapyramidal disorder [Not Recovered/Not Resolved]
  - Depressed mood [Not Recovered/Not Resolved]
